FAERS Safety Report 7387620-X (Version None)
Quarter: 2011Q1

REPORT INFORMATION
  Report Type: 
  Country: None (occurrence: None)
  Receive Date: 20110331
  Receipt Date: 20110328
  Transmission Date: 20110831
  Serious: Yes (Other)
  Sender: FDA-Public Use
  Company Number: JP-PFIZER INC-2011050289

PATIENT
  Sex: Male

DRUGS (2)
  1. AMLODIPINE [Suspect]
     Indication: HYPERTENSION
     Dosage: 5 MG, UNK
     Route: 048
     Dates: end: 20081107
  2. CYTOTEC [Concomitant]
     Indication: PROPHYLAXIS AGAINST GASTROINTESTINAL ULCER
     Dosage: 600 MG, 1X/DAY
     Route: 048

REACTIONS (4)
  - ARTERIOSCLEROSIS OBLITERANS [None]
  - GAIT DISTURBANCE [None]
  - PARKINSONISM [None]
  - SPINAL OSTEOARTHRITIS [None]
